FAERS Safety Report 6931045-5 (Version None)
Quarter: 2010Q3

REPORT INFORMATION
  Report Type: 
  Country: None (occurrence: None)
  Receive Date: 20100818
  Receipt Date: 20100811
  Transmission Date: 20110219
  Serious: Yes (Other)
  Sender: FDA-Public Use
  Company Number: JP-WYE-H16927910

PATIENT
  Age: 70 Year

DRUGS (1)
  1. ANCARON [Suspect]
     Dosage: DOSE AND FREQUENCY NOT SPECIFIED
     Route: 048
     Dates: start: 20000101

REACTIONS (1)
  - MACULOPATHY [None]
